FAERS Safety Report 10169264 (Version 3)
Quarter: 2016Q4

REPORT INFORMATION
  Report Type: Spontaneous
  Country: IE (occurrence: IE)
  Receive Date: 20140513
  Receipt Date: 20161017
  Transmission Date: 20170206
  Serious: Yes (Other)
  Sender: FDA-Public Use
  Company Number: IE-PFIZER INC-2014128708

PATIENT
  Age: 50 Year
  Sex: Male

DRUGS (6)
  1. SUTENT [Suspect]
     Active Substance: SUNITINIB MALATE
     Indication: MEDULLARY THYROID CANCER
     Dosage: 50 MG, ON 4/2 SCHEDULE
     Dates: start: 20131128, end: 20140728
  2. DULOXETINE. [Concomitant]
     Active Substance: DULOXETINE
     Dosage: 30 MG, UNK
  3. OXYNORM [Concomitant]
     Active Substance: OXYCODONE HYDROCHLORIDE
  4. OXYCONTIN [Concomitant]
     Active Substance: OXYCODONE HYDROCHLORIDE
     Dosage: 30 MG, UNK
  5. LIDOCAINE. [Concomitant]
     Active Substance: LIDOCAINE
  6. GABAPENTIN. [Concomitant]
     Active Substance: GABAPENTIN
     Dosage: 600 MG, UNK

REACTIONS (2)
  - Lumbar vertebral fracture [Unknown]
  - Product use issue [Unknown]
